FAERS Safety Report 5746789-0 (Version None)
Quarter: 2008Q2

REPORT INFORMATION
  Report Type: 
  Country: None (occurrence: None)
  Receive Date: 20080520
  Receipt Date: 20080502
  Transmission Date: 20081010
  Serious: Yes (Other)
  Sender: FDA-Public Use
  Company Number: DSA_31610_2008

PATIENT
  Age: 65 Year
  Sex: Female

DRUGS (2)
  1. ENALAPRIL MALEATE AND HYDROCHLOROTHIAZIDE [Suspect]
     Indication: HYPERTENSION
     Dosage: 1 DF QD10-25 MG TABLET ORAL
     Route: 048
     Dates: start: 19990401
  2. HORMONES NOS (HORMONE REPLACEMENT THERAPY) [Suspect]
     Indication: HORMONE REPLACEMENT THERAPY
     Dosage: DF A FEW YEARS

REACTIONS (3)
  - GASTRITIS EROSIVE [None]
  - HEPATIC NEOPLASM [None]
  - LABORATORY TEST INTERFERENCE [None]
